FAERS Safety Report 8616323-6 (Version None)
Quarter: 2012Q3

REPORT INFORMATION
  Report Type: 
  Country: None (occurrence: None)
  Receive Date: 20120823
  Receipt Date: 20120817
  Transmission Date: 20120928
  Serious: Yes (Life-Threatening)
  Sender: FDA-Public Use
  Company Number: FR-BAXTER-2012BAX014719

PATIENT
  Age: 59 Year
  Sex: Female

DRUGS (8)
  1. SOLU-MEDROL [Concomitant]
     Indication: PREMEDICATION
     Route: 065
     Dates: start: 20120719
  2. CARBOPLATIN [Suspect]
     Route: 042
     Dates: start: 20120720, end: 20120720
  3. ACETAMINOPHEN [Concomitant]
     Indication: PREMEDICATION
     Route: 065
     Dates: start: 20120719
  4. ETOPOSIDE [Suspect]
     Route: 065
     Dates: start: 20120719, end: 20120721
  5. MESNA [Suspect]
     Route: 042
     Dates: start: 20120720, end: 20120721
  6. MABTHERA [Suspect]
     Route: 042
     Dates: start: 20120719, end: 20120719
  7. IFOSFAMIDE [Suspect]
     Route: 042
     Dates: start: 20120720, end: 20120721
  8. POLARAMINE [Concomitant]
     Indication: PREMEDICATION
     Route: 065
     Dates: start: 20120719

REACTIONS (1)
  - ENCEPHALOPATHY [None]
